FAERS Safety Report 6646800-9 (Version None)
Quarter: 2010Q1

REPORT INFORMATION
  Report Type: 
  Country: None (occurrence: None)
  Receive Date: 20100323
  Receipt Date: 20100315
  Transmission Date: 20100710
  Serious: Yes (Hospitalization)
  Sender: FDA-Public Use
  Company Number: JP-MERCK-1003USA02780

PATIENT
  Age: 66 Year
  Sex: Female
  Weight: 57 kg

DRUGS (4)
  1. PEPCID RPD [Suspect]
     Indication: GASTRIC ULCER
     Route: 048
     Dates: start: 20091223, end: 20100203
  2. CANDESARTAN CILEXETIL [Concomitant]
     Route: 065
  3. AMARYL [Concomitant]
     Route: 065
  4. MYSLEE [Concomitant]
     Route: 048

REACTIONS (4)
  - CONTUSION [None]
  - EPISTAXIS [None]
  - PLATELET COUNT DECREASED [None]
  - PURPURA [None]
